FAERS Safety Report 8043676-2 (Version None)
Quarter: 2012Q1

REPORT INFORMATION
  Report Type: 
  Country: None (occurrence: None)
  Receive Date: 20120112
  Receipt Date: 20120109
  Transmission Date: 20120608
  Serious: Yes (Hospitalization)
  Sender: FDA-Public Use
  Company Number: GB-MERCK-1201GBR00024

PATIENT
  Age: 69 Year
  Sex: Male

DRUGS (14)
  1. FOSAMAX [Suspect]
     Route: 048
     Dates: start: 20110101
  2. LANSOPRAZOLE [Concomitant]
     Route: 048
  3. TOLTERODINE [Concomitant]
     Route: 048
  4. NIFEDIPINE [Concomitant]
     Route: 048
  5. CALCIUM CARBONATE AND CHOLECALCIFEROL [Concomitant]
     Route: 048
  6. AMINOPHYLLINE [Concomitant]
     Route: 048
  7. PREDNISOLONE [Suspect]
     Route: 048
  8. FUROSEMIDE [Concomitant]
     Route: 048
  9. PREDNISOLONE [Concomitant]
     Route: 048
  10. ATORVASTATIN [Concomitant]
     Route: 048
  11. FLUTICASONE [Concomitant]
     Route: 055
  12. GLICLAZIDE [Concomitant]
     Route: 065
  13. METFORMIN [Concomitant]
     Route: 048
  14. PRIMIDONE [Concomitant]
     Route: 048

REACTIONS (4)
  - GASTROINTESTINAL ULCER [None]
  - GASTRITIS [None]
  - WEIGHT DECREASED [None]
  - GASTROOESOPHAGEAL REFLUX DISEASE [None]
